FAERS Safety Report 9234815 (Version 1)
Quarter: 2013Q2

REPORT INFORMATION
  Report Type: Spontaneous
  Country: US (occurrence: US)
  Receive Date: 20130416
  Receipt Date: 20130416
  Transmission Date: 20140414
  Serious: Yes (Death, Hospitalization, Other)
  Sender: FDA-Public Use
  Company Number: US-CELGENEUS-163-20785-13033551

PATIENT
  Age: 78 Year
  Sex: Male
  Weight: 79 kg

DRUGS (31)
  1. THALOMID [Suspect]
     Indication: PLASMA CELL MYELOMA
     Dosage: 200 MILLIGRAM
     Route: 048
     Dates: start: 201005
  2. THALOMID [Suspect]
     Dosage: 100 MILLIGRAM
     Route: 048
     Dates: start: 201201
  3. THALOMID [Suspect]
     Dosage: 100 MILLIGRAM
     Route: 048
     Dates: start: 20120815, end: 20130309
  4. LORAZEPAM [Concomitant]
     Indication: ANXIETY
     Route: 060
     Dates: start: 2013
  5. LORAZEPAM [Concomitant]
     Indication: DYSPNOEA
  6. GABAPENTIN [Concomitant]
     Indication: NEURALGIA
     Dosage: 900 MILLIGRAM
     Route: 048
  7. GABAPENTIN [Concomitant]
     Indication: MUSCULOSKELETAL CHEST PAIN
     Dosage: 900 MILLIGRAM
     Route: 048
  8. TRAMADOL [Concomitant]
     Indication: MUSCULOSKELETAL CHEST PAIN
     Dosage: 100MG
     Route: 048
  9. CLONAZEPAM [Concomitant]
     Indication: ANXIETY
     Dosage: .5 MILLIGRAM
     Route: 048
  10. OMEPRAZOLE MAGNESIUM [Concomitant]
     Indication: PRODUCT USED FOR UNKNOWN INDICATION
     Dosage: 20 MILLIGRAM
     Route: 048
  11. CICLOPIROX [Concomitant]
     Indication: PRODUCT USED FOR UNKNOWN INDICATION
     Dosage: 6.6 MILLILITER
     Route: 061
  12. DEXAMETHASONE [Concomitant]
     Indication: PRODUCT USED FOR UNKNOWN INDICATION
     Route: 048
  13. COUMADIN [Concomitant]
     Indication: PRODUCT USED FOR UNKNOWN INDICATION
     Route: 065
  14. DILTIAZEM [Concomitant]
     Indication: ATRIAL FIBRILLATION
     Route: 048
  15. ZOSYN [Concomitant]
     Indication: PNEUMONIA
     Route: 065
  16. LEVAQUIN [Concomitant]
     Indication: PNEUMONIA
     Route: 065
     Dates: start: 20130308
  17. AMPICILLIN [Concomitant]
     Indication: URINARY TRACT INFECTION
     Route: 041
  18. VANCOMYCIN [Concomitant]
     Indication: URINARY TRACT INFECTION
     Route: 065
     Dates: start: 20130228
  19. ROCEPHIN [Concomitant]
     Indication: URINARY TRACT INFECTION
     Route: 065
     Dates: start: 20130224, end: 20130226
  20. ATROPINE [Concomitant]
     Indication: SALIVARY HYPERSECRETION
     Dosage: 2 DROPS
     Route: 060
     Dates: start: 2013
  21. MORPHINE [Concomitant]
     Indication: PAIN
     Dosage: 100MG/ 0.5 ML
     Route: 048
  22. MORPHINE [Concomitant]
     Indication: DYSPNOEA
  23. ACETAMINOPHEN [Concomitant]
     Indication: PAIN
     Route: 054
     Dates: start: 2013
  24. ACETAMINOPHEN [Concomitant]
     Indication: PYREXIA
  25. LEVALBUTEROL [Concomitant]
     Indication: DYSPNOEA
     Dosage: 0.63MG/3ML
     Route: 055
  26. LEVALBUTEROL [Concomitant]
     Indication: WHEEZING
  27. MAGNESIUM HYDROXIDE [Concomitant]
     Indication: CONSTIPATION
     Dosage: 30ML
     Route: 048
  28. MIRALAX [Concomitant]
     Indication: PRODUCT USED FOR UNKNOWN INDICATION
     Dosage: 17 GRAM
     Route: 048
     Dates: start: 2013
  29. DOCUSATE SODIUM\SENNOSIDES [Concomitant]
     Indication: PRODUCT USED FOR UNKNOWN INDICATION
     Dosage: 100 MILLIGRAM
     Route: 048
     Dates: start: 2013
  30. NYSTATIN [Concomitant]
     Indication: PRODUCT USED FOR UNKNOWN INDICATION
     Dosage: 2 GRAM
     Route: 065
     Dates: start: 2013
  31. ASPIRIN [Concomitant]
     Indication: PRODUCT USED FOR UNKNOWN INDICATION
     Dosage: 325 MILLIGRAM
     Route: 060
     Dates: start: 2013

REACTIONS (7)
  - Renal failure chronic [Fatal]
  - Hypertension [Fatal]
  - Subdural haematoma [Unknown]
  - Fall [Unknown]
  - Gastrointestinal haemorrhage [Unknown]
  - Transient ischaemic attack [Unknown]
  - Neutropenia [Unknown]
